FAERS Safety Report 10791957 (Version 8)
Quarter: 2019Q1

REPORT INFORMATION
  Report Type: Spontaneous
  Country: US (occurrence: US)
  Receive Date: 20150213
  Receipt Date: 20190131
  Transmission Date: 20190417
  Serious: Yes (Hospitalization, Other)
  Sender: FDA-Public Use
  Company Number: US-ROCHE-1535509

PATIENT
  Age: 75 Year
  Sex: Female
  Weight: 63.56 kg

DRUGS (7)
  1. BONIVA [Suspect]
     Active Substance: IBANDRONATE SODIUM
     Route: 048
     Dates: start: 2015
  2. CITRACAL + D [Concomitant]
     Active Substance: CALCIUM CITRATE\VITAMIN D
  3. BONIVA [Suspect]
     Active Substance: IBANDRONATE SODIUM
     Indication: OSTEOPOROSIS
     Route: 048
     Dates: start: 20050322, end: 201301
  4. FOSAMAX [Suspect]
     Active Substance: ALENDRONATE SODIUM
     Indication: OSTEOPENIA
  5. FOSAMAX [Suspect]
     Active Substance: ALENDRONATE SODIUM
     Indication: OSTEOPOROSIS
     Route: 048
     Dates: start: 20010622, end: 200501
  6. BONIVA [Suspect]
     Active Substance: IBANDRONATE SODIUM
     Indication: OSTEOPENIA
     Route: 048
     Dates: start: 2014
  7. BONIVA [Suspect]
     Active Substance: IBANDRONATE SODIUM
     Route: 048
     Dates: start: 2016

REACTIONS (19)
  - Transient ischaemic attack [Unknown]
  - Eye contusion [Unknown]
  - Anxiety [Unknown]
  - Femur fracture [Unknown]
  - Low turnover osteopathy [Unknown]
  - Dermatitis contact [Unknown]
  - Large intestine polyp [Unknown]
  - Diverticulum [Unknown]
  - Stress fracture [Unknown]
  - Conjunctivitis viral [Unknown]
  - Keratitis [Unknown]
  - Glaucoma [Unknown]
  - Conjunctivitis allergic [Unknown]
  - Emotional distress [Unknown]
  - Dry eye [Unknown]
  - Vitreous haemorrhage [Unknown]
  - Presbyopia [Unknown]
  - Hordeolum [Unknown]
  - Cataract [Unknown]

NARRATIVE: CASE EVENT DATE: 20061123
